FAERS Safety Report 20219042 (Version 2)
Quarter: 2022Q1

REPORT INFORMATION
  Report Type: Spontaneous
  Country: US (occurrence: US)
  Receive Date: 20211222
  Receipt Date: 20220207
  Transmission Date: 20220424
  Serious: No
  Sender: FDA-Public Use
  Company Number: US-INCYTE CORPORATION-2021IN011747

PATIENT

DRUGS (1)
  1. JAKAFI [Suspect]
     Active Substance: RUXOLITINIB
     Indication: Acute graft versus host disease
     Dosage: 5 MILLIGRAM, BID
     Route: 048
     Dates: start: 202109

REACTIONS (1)
  - Emergency care [Unknown]
